FAERS Safety Report 9189850 (Version 1)
Quarter: 2013Q1

REPORT INFORMATION
  Report Type: Spontaneous
  Country: US (occurrence: None)
  Receive Date: 20120703
  Receipt Date: 20120703
  Transmission Date: 20140127
  Serious: No
  Sender: FDA-Public Use
  Company Number: PHEH2012US008050

PATIENT
  Age: 44 Year
  Sex: Female
  Weight: 77.1 kg

DRUGS (8)
  1. GILENYA [Suspect]
     Indication: RELAPSING-REMITTING MULTIPLE SCLEROSIS
     Route: 048
     Dates: start: 20120326, end: 20120409
  2. BACLOFEN (BACLOFEN) [Concomitant]
  3. ASA (ACETYLSALICYCLIC ACID) [Concomitant]
  4. IRON (IRON) [Concomitant]
  5. KLONOPIN (CLONAZEPAM) TABLET [Concomitant]
  6. BOTOX (BOTULINUM TOXIN TYPE A)INJECTION [Concomitant]
  7. CIPRO (CIPROFLOXACIN HYDROCHLORIDE) TABLET [Concomitant]
  8. MULTIVITAMINS (ASCORBIC ACID, ERGOCALCIFEROL, FOLIC ACID, NICOTINAMIDE, PANTHENOL, RETINOL, RIBOOFLAVIN, THIAMINE HYDROCHLORIDE) TABLET [Concomitant]

REACTIONS (3)
  - Nausea [None]
  - Paraesthesia [None]
  - Urinary tract infection [None]
